FAERS Safety Report 8016182-9 (Version None)
Quarter: 2011Q4

REPORT INFORMATION
  Report Type: 
  Country: None (occurrence: None)
  Receive Date: 20111230
  Receipt Date: 20111220
  Transmission Date: 20120403
  Serious: Yes (Hospitalization, Other)
  Sender: FDA-Public Use
  Company Number: DE-ACTELION-A-US2011-56322

PATIENT

DRUGS (7)
  1. NOCTURNO [Concomitant]
  2. VENTAVIS [Suspect]
     Indication: PRODUCT USED FOR UNKNOWN INDICATION
     Dosage: UNK
     Route: 055
     Dates: start: 20090101
  3. COUMADIN [Suspect]
  4. TEVAPIRIN [Concomitant]
  5. FUROSEMIDE [Concomitant]
  6. TRACLEER [Concomitant]
     Indication: PULMONARY ARTERIAL HYPERTENSION
  7. LEVOTHYROXINE SODIUM [Concomitant]

REACTIONS (4)
  - OESOPHAGEAL VARICES HAEMORRHAGE [None]
  - HAEMOGLOBIN DECREASED [None]
  - SCLEROTHERAPY [None]
  - TRANSFUSION [None]
